FAERS Safety Report 8398167-6 (Version None)
Quarter: 2012Q2

REPORT INFORMATION
  Report Type: 
  Country: None (occurrence: None)
  Receive Date: 20120531
  Receipt Date: 20120524
  Transmission Date: 20120825
  Serious: Yes (Other)
  Sender: FDA-Public Use
  Company Number: IN-PFIZER INC-2012126108

PATIENT
  Age: 35 Year
  Sex: Male

DRUGS (4)
  1. ADRIAMYCIN PFS [Suspect]
     Indication: HODGKIN'S DISEASE
     Dosage: 6 CYCLES
  2. BLEOMYCIN SULFATE [Suspect]
     Indication: HODGKIN'S DISEASE
     Dosage: 6 CYCLES
  3. VINBLASTINE SULFATE [Suspect]
     Indication: HODGKIN'S DISEASE
     Dosage: 6 CYCLES
  4. DACARBAZINE [Suspect]
     Indication: HODGKIN'S DISEASE
     Dosage: 6 CYCLES

REACTIONS (3)
  - BLADDER CANCER [None]
  - DYSURIA [None]
  - NEOPLASM MALIGNANT [None]
